FAERS Safety Report 6195376-1 (Version None)
Quarter: 2009Q2

REPORT INFORMATION
  Report Type: 
  Country: None (occurrence: None)
  Receive Date: 20090519
  Receipt Date: 20090518
  Transmission Date: 20091009
  Serious: Yes (Other)
  Sender: FDA-Public Use
  Company Number: US-BRISTOL-MYERS SQUIBB COMPANY-13492293

PATIENT
  Age: 59 Year
  Sex: Female
  Weight: 105 kg

DRUGS (16)
  1. ESTRACE [Suspect]
     Indication: MENOPAUSAL SYMPTOMS
  2. ESTRACE [Suspect]
     Indication: MENOPAUSAL SYMPTOMS
     Route: 067
  3. PREMARIN [Suspect]
     Indication: MENOPAUSAL SYMPTOMS
  4. PREMPRO [Suspect]
     Indication: MENOPAUSAL SYMPTOMS
  5. ESTRATEST [Suspect]
     Indication: MENOPAUSAL SYMPTOMS
  6. CENESTIN [Suspect]
     Indication: MENOPAUSAL SYMPTOMS
  7. LIPITOR [Concomitant]
  8. ZOLOFT [Concomitant]
     Dosage: ALSO TAKEN 200MG/DAILY.
  9. SYNTHROID [Concomitant]
  10. MOBIC [Concomitant]
     Dosage: 1 DOSAGE FORM=7.5(UNIT NOT SPECIFIED);ALSO GIVEN 150MG TID
  11. AVALIDE [Concomitant]
     Dosage: ALSO TAKEN 150MG/BID
  12. GLUCOPHAGE [Concomitant]
  13. TRICOR [Concomitant]
  14. GLUCOVANCE [Concomitant]
  15. DITROPAN [Concomitant]
  16. TRAMADOL HCL [Concomitant]

REACTIONS (1)
  - BREAST CANCER [None]
